FAERS Safety Report 7207807-6 (Version None)
Quarter: 2011Q1

REPORT INFORMATION
  Report Type: 
  Country: None (occurrence: None)
  Receive Date: 20110104
  Receipt Date: 20101222
  Transmission Date: 20110831
  Serious: Yes (Other)
  Sender: FDA-Public Use
  Company Number: US-ASTRAZENECA-2010SE60409

PATIENT
  Age: 39 Year
  Sex: Male

DRUGS (6)
  1. DIGOXIN [Concomitant]
  2. LOPRESSOR [Concomitant]
  3. OMEPRAZOLE [Suspect]
     Route: 048
  4. ENALAPRIL [Concomitant]
  5. PLAVIX [Suspect]
     Route: 065
  6. COUMADIN [Suspect]
     Route: 065

REACTIONS (1)
  - MYOCARDIAL INFARCTION [None]
